FAERS Safety Report 17296695 (Version 3)
Quarter: 2020Q1

REPORT INFORMATION
  Report Type: Spontaneous
  Country: US (occurrence: US)
  Receive Date: 20200122
  Receipt Date: 20200326
  Transmission Date: 20200409
  Serious: No
  Sender: FDA-Public Use
  Company Number: US-TEVA-2020-US-1170276

PATIENT
  Sex: Male

DRUGS (1)
  1. TESTOSTERONE ACTAVIS [Suspect]
     Active Substance: TESTOSTERONE
     Dosage: FOR 17 YEARS
     Route: 065

REACTIONS (4)
  - Blood testosterone decreased [Recovered/Resolved]
  - Product substitution issue [Unknown]
  - Product physical consistency issue [Unknown]
  - Product odour abnormal [Unknown]
